FAERS Safety Report 20298744 (Version 1)
Quarter: 2022Q1

REPORT INFORMATION
  Report Type: Report from Study
  Country: FR (occurrence: FR)
  Receive Date: 20220105
  Receipt Date: 20220105
  Transmission Date: 20220423
  Serious: Yes (Death, Other)
  Sender: FDA-Public Use
  Company Number: FR-MYLANLABS-2022M1000406

PATIENT
  Age: 16 Year
  Sex: Male

DRUGS (19)
  1. METHOTREXATE [Suspect]
     Active Substance: METHOTREXATE
     Indication: Chondroblastoma
     Dosage: 48 GRAM, 48 G/M2
     Route: 065
  2. METHOTREXATE [Suspect]
     Active Substance: METHOTREXATE
     Indication: Osteosarcoma
  3. METHOTREXATE [Suspect]
     Active Substance: METHOTREXATE
     Indication: Metastases to lung
  4. CISPLATIN [Suspect]
     Active Substance: CISPLATIN
     Indication: Chondroblastoma
     Dosage: 0.4 GRAM, 0.4 G/M2
     Route: 065
  5. CISPLATIN [Suspect]
     Active Substance: CISPLATIN
     Indication: Osteosarcoma
  6. CISPLATIN [Suspect]
     Active Substance: CISPLATIN
     Indication: Metastases to lung
  7. IFOSFAMIDE [Suspect]
     Active Substance: IFOSFAMIDE
     Indication: Chondroblastoma
     Dosage: 45 GRAM, 45 G/M2
     Route: 065
  8. IFOSFAMIDE [Suspect]
     Active Substance: IFOSFAMIDE
     Indication: Osteosarcoma
  9. IFOSFAMIDE [Suspect]
     Active Substance: IFOSFAMIDE
     Indication: Metastases to lung
  10. DOXORUBICIN HYDROCHLORIDE [Suspect]
     Active Substance: DOXORUBICIN HYDROCHLORIDE
     Indication: Chondroblastoma
     Dosage: 0.46 GRAM, 0.46 G/M2
     Route: 065
  11. DOXORUBICIN HYDROCHLORIDE [Suspect]
     Active Substance: DOXORUBICIN HYDROCHLORIDE
     Indication: Osteosarcoma
  12. DOXORUBICIN HYDROCHLORIDE [Suspect]
     Active Substance: DOXORUBICIN HYDROCHLORIDE
     Indication: Metastases to lung
  13. ETOPOSIDE [Suspect]
     Active Substance: ETOPOSIDE
     Indication: Chondroblastoma
     Dosage: 0.5 GRAM, 0.5 G/M2
     Route: 065
  14. ETOPOSIDE [Suspect]
     Active Substance: ETOPOSIDE
     Indication: Osteosarcoma
  15. ETOPOSIDE [Suspect]
     Active Substance: ETOPOSIDE
     Indication: Metastases to lung
  16. VINDESINE [Suspect]
     Active Substance: VINDESINE
     Indication: Chondroblastoma
     Dosage: 0.015 GRAM, 0.015 G/M2
     Route: 065
  17. VINDESINE [Suspect]
     Active Substance: VINDESINE
     Indication: Osteosarcoma
  18. VINDESINE [Suspect]
     Active Substance: VINDESINE
     Indication: Metastases to lung
  19. MESNA [Concomitant]
     Active Substance: MESNA
     Indication: Product used for unknown indication
     Dosage: 55.9 GRAM, 55.9 G/ M2
     Route: 065

REACTIONS (6)
  - End stage renal disease [Fatal]
  - Anuria [Fatal]
  - Coma [Fatal]
  - Nephropathy toxic [Unknown]
  - Renal tubular disorder [Unknown]
  - Drug resistance [Unknown]
